FAERS Safety Report 5030648-5 (Version None)
Quarter: 2006Q2

REPORT INFORMATION
  Report Type: 
  Country: None (occurrence: None)
  Receive Date: 20060615
  Receipt Date: 20060602
  Transmission Date: 20061013
  Serious: Yes (Death, Hospitalization, Other)
  Sender: FDA-Public Use
  Company Number: 2005103228

PATIENT
  Age: 84 Year
  Sex: Female
  Weight: 72.5755 kg

DRUGS (2)
  1. CELEBREX [Suspect]
     Indication: ARTHRALGIA
     Dosage: UNKNOWN (2 IN 1 D), ORAL
     Route: 048
     Dates: start: 20000101, end: 20021009
  2. VIOXX [Suspect]
     Indication: ILL-DEFINED DISORDER
     Dosage: 25 MG (25 MG, 1 IN 1 D), ORAL
     Route: 048

REACTIONS (10)
  - ANHEDONIA [None]
  - ASTHENIA [None]
  - BEDRIDDEN [None]
  - CARDIOGENIC SHOCK [None]
  - CEREBROVASCULAR ACCIDENT [None]
  - DIALYSIS [None]
  - IMPAIRED SELF-CARE [None]
  - RENAL FAILURE [None]
  - SELF ESTEEM DECREASED [None]
  - THROMBOSIS [None]
